FAERS Safety Report 7469224-3 (Version None)
Quarter: 2011Q2

REPORT INFORMATION
  Report Type: 
  Country: None (occurrence: None)
  Receive Date: 20110510
  Receipt Date: 20110412
  Transmission Date: 20111010
  Serious: Yes (Hospitalization, Other)
  Sender: FDA-Public Use
  Company Number: US-BAYER-2011-033827

PATIENT
  Age: 48 Year
  Sex: Female
  Weight: 81.633 kg

DRUGS (8)
  1. TYLENOL PM [DIPHENHYDRAMINE,PARACETAMOL] [Concomitant]
  2. DULCOLAX [Concomitant]
  3. MULTI-VITAMINS [Concomitant]
  4. POTASSIUM [POTASSIUM] [Concomitant]
  5. CYMBALTA [Concomitant]
     Dosage: UNK
     Dates: start: 20020101
  6. YAZ [Suspect]
     Indication: PRODUCT USED FOR UNKNOWN INDICATION
  7. TOPAMAX [Concomitant]
     Dosage: UNK
     Dates: start: 20050101
  8. SIMVASTATIN [Concomitant]
     Dosage: UNK
     Dates: start: 20060101

REACTIONS (7)
  - PULMONARY EMBOLISM [None]
  - CHEST PAIN [None]
  - INJURY [None]
  - DYSPNOEA [None]
  - PAIN [None]
  - ANXIETY [None]
  - DEPRESSION [None]
